FAERS Safety Report 8286395 (Version 4)
Quarter: 2023Q4

REPORT INFORMATION
  Report Type: Spontaneous
  Country: US (occurrence: US)
  Receive Date: 20111213
  Receipt Date: 20231202
  Transmission Date: 20240110
  Serious: Yes (Hospitalization, Disabling)
  Sender: FDA-Public Use
  Company Number: US-BAYER-2011-117085

PATIENT
  Age: 24 Year
  Sex: Female

DRUGS (4)
  1. YAZ [Suspect]
     Active Substance: DROSPIRENONE\ETHINYL ESTRADIOL
     Indication: Menstruation irregular
     Dosage: UNK UNK, QD
     Dates: start: 20080612, end: 20100629
  2. GIANVI [Suspect]
     Active Substance: DROSPIRENONE\ETHINYL ESTRADIOL
     Indication: Menstruation irregular
     Dosage: UNK UNK, QD
     Dates: start: 20100630, end: 20110829
  3. YASMIN [Suspect]
     Active Substance: DROSPIRENONE\ETHINYL ESTRADIOL
  4. OCELLA [Suspect]
     Active Substance: DROSPIRENONE\ETHINYL ESTRADIOL

REACTIONS (7)
  - Pulmonary embolism [None]
  - Chest pain [None]
  - Dyspnoea [None]
  - Injury [None]
  - Back pain [None]
  - Deformity [None]
  - Anxiety [None]

NARRATIVE: CASE EVENT DATE: 20110829
